FAERS Safety Report 10745421 (Version 1)
Quarter: 2015Q1

REPORT INFORMATION
  Report Type: Spontaneous
  Country: US (occurrence: US)
  Receive Date: 20150128
  Receipt Date: 20150128
  Transmission Date: 20150721
  Serious: Yes (Other)
  Sender: FDA-Public Use
  Company Number: US-PFIZER INC-2015032048

PATIENT
  Sex: Female

DRUGS (1)
  1. PREMARIN [Suspect]
     Active Substance: ESTROGENS, CONJUGATED
     Indication: HYSTERECTOMY
     Dosage: 1.25 MG, UNK
     Route: 048

REACTIONS (9)
  - Nervousness [Unknown]
  - Limb discomfort [Unknown]
  - Tremor [Unknown]
  - Irritability [Unknown]
  - Hot flush [Unknown]
  - Back pain [Unknown]
  - Hypoaesthesia [Unknown]
  - Pain in extremity [Unknown]
  - Influenza [Unknown]
